FAERS Safety Report 14705053 (Version 1)
Quarter: 2018Q2

REPORT INFORMATION
  Report Type: Spontaneous
  Country: JP (occurrence: JP)
  Receive Date: 20180402
  Receipt Date: 20180402
  Transmission Date: 20180711
  Serious: Yes (Other)
  Sender: FDA-Public Use
  Company Number: JP-ASTRAZENECA-2018SE41037

PATIENT
  Age: 38 Year
  Sex: Female

DRUGS (1)
  1. SEROQUEL [Suspect]
     Active Substance: QUETIAPINE FUMARATE
     Indication: PRODUCT USED FOR UNKNOWN INDICATION
     Route: 048
     Dates: start: 201803

REACTIONS (4)
  - Suicide attempt [Unknown]
  - Altered state of consciousness [Unknown]
  - Nausea [Unknown]
  - Intentional overdose [Unknown]

NARRATIVE: CASE EVENT DATE: 201803
